FAERS Safety Report 9469294 (Version 1)
Quarter: 2013Q3

REPORT INFORMATION
  Report Type: Spontaneous
  Country: US (occurrence: None)
  Receive Date: 20130815
  Receipt Date: 20130815
  Transmission Date: 20140515
  Serious: Yes (Other)
  Sender: FDA-Public Use
  Company Number: KAD201308-000984

PATIENT
  Sex: 0

DRUGS (2)
  1. INTERFERON [Suspect]
     Indication: CHRONIC HEPATITIS C
  2. RIBAVIRIN (RIBAVIRIN) [Suspect]

REACTIONS (2)
  - Diffuse large B-cell lymphoma [None]
  - Hepatocellular carcinoma [None]
